FAERS Safety Report 9787273 (Version 1)
Quarter: 2013Q4

REPORT INFORMATION
  Report Type: Spontaneous
  Country: CN (occurrence: CN)
  Receive Date: 20131230
  Receipt Date: 20131230
  Transmission Date: 20140711
  Serious: Yes (Hospitalization)
  Sender: FDA-Public Use
  Company Number: CN-ROCHE-1325074

PATIENT
  Age: 7 Year
  Sex: Male

DRUGS (1)
  1. CEFTRIAXONE SODIUM [Suspect]
     Indication: UPPER RESPIRATORY TRACT INFECTION
     Route: 041

REACTIONS (4)
  - Anaphylactic shock [Recovered/Resolved]
  - Acid base balance abnormal [Recovered/Resolved]
  - Hypokalaemia [Recovered/Resolved]
  - Aphasia [Recovered/Resolved]
